FAERS Safety Report 11304107 (Version 1)
Quarter: 2015Q3

REPORT INFORMATION
  Report Type: Spontaneous
  Country: US (occurrence: US)
  Receive Date: 20150723
  Receipt Date: 20150723
  Transmission Date: 20151125
  Serious: No
  Sender: FDA-Public Use
  Company Number: US-JNJFOC-20141009778

PATIENT
  Age: 38 Year
  Sex: Male
  Weight: 64.41 kg

DRUGS (2)
  1. ZYRTEC [Suspect]
     Active Substance: CETIRIZINE HYDROCHLORIDE
     Indication: THROAT IRRITATION
     Dosage: 1-2 DAILY
     Route: 048
     Dates: end: 20141009
  2. ZYRTEC [Suspect]
     Active Substance: CETIRIZINE HYDROCHLORIDE
     Indication: UPPER-AIRWAY COUGH SYNDROME
     Dosage: 1-2 DAILY
     Route: 048
     Dates: end: 20141009

REACTIONS (1)
  - Drug ineffective [Unknown]
